FAERS Safety Report 20382840 (Version 1)
Quarter: 2022Q1

REPORT INFORMATION
  Report Type: Spontaneous
  Country: SE (occurrence: SE)
  Receive Date: 20220127
  Receipt Date: 20220127
  Transmission Date: 20220423
  Serious: Yes (Other)
  Sender: FDA-Public Use
  Company Number: None

PATIENT
  Age: 76 Year
  Sex: Female

DRUGS (26)
  1. HYQVIA [Suspect]
     Active Substance: HUMAN IMMUNOGLOBULIN G\HYALURONIDASE RECOMBINANT HUMAN
     Indication: Selective IgG subclass deficiency
     Dosage: 300 MILLILITER, Q4WEEKS
     Route: 058
     Dates: start: 20190820
  2. LAKTULOS [Concomitant]
     Route: 065
  3. PRAMIPEXOLE [Concomitant]
     Active Substance: PRAMIPEXOLE
     Route: 065
  4. OVIXAN [Concomitant]
     Dosage: UNK
     Route: 065
  5. KETOCONAZOLE [Concomitant]
     Active Substance: KETOCONAZOLE
     Dosage: UNK
     Route: 065
  6. TAPIN [Concomitant]
     Dosage: UNK
     Route: 065
  7. SODIUM FLUORIDE [Concomitant]
     Active Substance: SODIUM FLUORIDE
     Route: 065
  8. EMOVAT [Concomitant]
     Dosage: UNK
     Route: 065
  9. ACETAMINOPHEN [Concomitant]
     Active Substance: ACETAMINOPHEN
     Dosage: UNK
     Route: 065
  10. Noviform [Concomitant]
     Dosage: VID BEHOV
  11. MOMETASONE [Concomitant]
     Active Substance: MOMETASONE
  12. CALCIUM CARBONATE\CHOLECALCIFEROL [Concomitant]
     Active Substance: CALCIUM CARBONATE\CHOLECALCIFEROL
  13. ALBUTEROL SULFATE [Concomitant]
     Active Substance: ALBUTEROL SULFATE
     Dosage: VID BEHOV
  14. OCULENTUM SIMPLEX [Concomitant]
  15. CARBOMER [Concomitant]
     Active Substance: CARBOMER
     Dosage: VID BEHOV
  16. LEVOTHYROXINE SODIUM [Concomitant]
     Active Substance: LEVOTHYROXINE SODIUM
  17. PREDNISOLONE [Concomitant]
     Active Substance: PREDNISOLONE
  18. NITROLINGUAL [Concomitant]
     Active Substance: NITROGLYCERIN
     Dosage: VID BEHOV
  19. DOXYCYCLINE [Concomitant]
     Active Substance: DOXYCYCLINE
     Dosage: VID BEHOV
  20. Furix [Concomitant]
     Dosage: VID BEHOV
  21. ALBUTEROL SULFATE [Concomitant]
     Active Substance: ALBUTEROL SULFATE
     Dosage: VID BEHOV
  22. DESLORATADINE [Concomitant]
     Active Substance: DESLORATADINE
     Dosage: VID BEHOV
  23. ZOLPIDEM [Concomitant]
     Active Substance: ZOLPIDEM TARTRATE
     Dosage: VID BEHOV
  24. ACETYLCYSTEINE [Concomitant]
     Active Substance: ACETYLCYSTEINE
     Dosage: VID BEHOV
  25. ACETAMINOPHEN\CODEINE PHOSPHATE [Concomitant]
     Active Substance: ACETAMINOPHEN\CODEINE PHOSPHATE
     Dosage: VID BEHOV
  26. OXYCODONE [Concomitant]
     Active Substance: OXYCODONE
     Dosage: VID BEHOV

REACTIONS (1)
  - Myalgia [Not Recovered/Not Resolved]

NARRATIVE: CASE EVENT DATE: 20210601
